FAERS Safety Report 17674081 (Version 2)
Quarter: 2020Q2

REPORT INFORMATION
  Report Type: Spontaneous
  Country: BE (occurrence: BE)
  Receive Date: 20200415
  Receipt Date: 20200512
  Transmission Date: 20200714
  Serious: Yes (Other)
  Sender: FDA-Public Use
  Company Number: BE-CELLTRION INC.-2020BE021448

PATIENT

DRUGS (2)
  1. RITUXIMAB (UNKNOWN) [Suspect]
     Active Substance: RITUXIMAB
     Indication: IMMUNOCHEMOTHERAPY
     Dosage: 375 MG/M2 (ON DAY 1)
     Route: 065
  2. BENDAMUSTINE [Suspect]
     Active Substance: BENDAMUSTINE
     Indication: IMMUNOCHEMOTHERAPY
     Dosage: 70 MG/M2 (ON DAY 1 AND 2)
     Route: 065

REACTIONS (5)
  - Type III immune complex mediated reaction [Unknown]
  - Thrombocytopenia [Unknown]
  - Serum sickness [Unknown]
  - Malaise [Unknown]
  - Arthralgia [Unknown]
